FAERS Safety Report 19402744 (Version 1)
Quarter: 2021Q2

REPORT INFORMATION
  Report Type: Report from Study
  Country: MX (occurrence: MX)
  Receive Date: 20210610
  Receipt Date: 20210610
  Transmission Date: 20210717
  Serious: Yes (Other)
  Sender: FDA-Public Use
  Company Number: NVSC2021MX128768

PATIENT
  Sex: Female

DRUGS (1)
  1. EXFORGE HCT [Suspect]
     Active Substance: AMLODIPINE BESYLATE\HYDROCHLOROTHIAZIDE\VALSARTAN
     Indication: HYPERTENSION
     Dosage: 1 DF, STARTED 2 MONTHS AGO APPROXIMATELY
     Route: 065

REACTIONS (3)
  - Depression [Unknown]
  - Blood glucose abnormal [Unknown]
  - Decreased appetite [Not Recovered/Not Resolved]
